FAERS Safety Report 12918913 (Version 2)
Quarter: 2016Q4

REPORT INFORMATION
  Report Type: Spontaneous
  Country: AR (occurrence: AR)
  Receive Date: 20161108
  Receipt Date: 20161115
  Transmission Date: 20170207
  Serious: Yes (Hospitalization)
  Sender: FDA-Public Use
  Company Number: AR-ROCHE-1850994

PATIENT
  Age: 76 Year
  Sex: Female

DRUGS (1)
  1. MABTHERA [Suspect]
     Active Substance: RITUXIMAB
     Indication: B-CELL LYMPHOMA
     Dosage: THERAPY STARTED ON 13/JAN/2016
     Route: 042
     Dates: start: 20160113

REACTIONS (4)
  - Tachycardia [Recovered/Resolved]
  - Throat irritation [Recovered/Resolved]
  - Blood pressure increased [Recovered/Resolved]
  - Intraductal proliferative breast lesion [Recovered/Resolved]

NARRATIVE: CASE EVENT DATE: 201610
